FAERS Safety Report 9927351 (Version 1)
Quarter: 2014Q1

REPORT INFORMATION
  Report Type: Spontaneous
  Country: FR (occurrence: FR)
  Receive Date: 20140226
  Receipt Date: 20140226
  Transmission Date: 20141002
  Serious: Yes (Hospitalization)
  Sender: FDA-Public Use
  Company Number: FR-ABBVIE-14P-056-1203060-00

PATIENT
  Age: 53 Year
  Sex: Male

DRUGS (5)
  1. HUMIRA [Suspect]
     Indication: CROHN^S DISEASE
     Dates: start: 200908, end: 20111205
  2. METOJECT [Suspect]
     Indication: CROHN^S DISEASE
     Route: 058
     Dates: end: 20111205
  3. TRIATEC [Concomitant]
     Indication: PRODUCT USED FOR UNKNOWN INDICATION
  4. SPASFON [Concomitant]
     Indication: PRODUCT USED FOR UNKNOWN INDICATION
  5. SOLUPRED [Concomitant]
     Indication: PRODUCT USED FOR UNKNOWN INDICATION

REACTIONS (3)
  - Glomerulonephritis [Not Recovered/Not Resolved]
  - Oliguria [Unknown]
  - Renal failure acute [Not Recovered/Not Resolved]
